FAERS Safety Report 16346016 (Version 1)
Quarter: 2019Q2

REPORT INFORMATION
  Report Type: Spontaneous
  Country: HU (occurrence: HU)
  Receive Date: 20190523
  Receipt Date: 20190523
  Transmission Date: 20190711
  Serious: Yes (Other)
  Sender: FDA-Public Use
  Company Number: HU-ASTRAZENECA-2019SE73211

PATIENT
  Age: 64 Year
  Sex: Female

DRUGS (2)
  1. PALBOCICLIB [Suspect]
     Active Substance: PALBOCICLIB
     Indication: BREAST CANCER METASTATIC
     Dosage: UNK
     Route: 048
     Dates: start: 201802, end: 201904
  2. FULVESTRANT. [Suspect]
     Active Substance: FULVESTRANT
     Indication: BREAST CANCER METASTATIC
     Dosage: UNK
     Route: 030
     Dates: start: 201802, end: 201904

REACTIONS (8)
  - Neoplasm progression [Unknown]
  - Hot flush [Unknown]
  - Dry skin [Unknown]
  - Alopecia [Unknown]
  - Fatigue [Unknown]
  - Granulocytopenia [Unknown]
  - Anaemia [Unknown]
  - Leukopenia [Unknown]
